FAERS Safety Report 17644007 (Version 1)
Quarter: 2020Q2

REPORT INFORMATION
  Report Type: Report from Study
  Country: IT (occurrence: IT)
  Receive Date: 20200408
  Receipt Date: 20200408
  Transmission Date: 20200713
  Serious: Yes (Hospitalization)
  Sender: FDA-Public Use
  Company Number: IT-TEVA-2020-IT-1220553

PATIENT
  Age: 38 Year
  Sex: Female

DRUGS (3)
  1. AMOXICILLIN TRIHYDRATE [Suspect]
     Active Substance: AMOXICILLIN
     Indication: DENTAL CARE
     Dosage: 2 DOSAGE FORMS
     Dates: start: 20200315, end: 20200317
  2. DAFLON [Concomitant]
  3. BILASTINE [Concomitant]
     Active Substance: BILASTINE

REACTIONS (6)
  - Hypotension [Unknown]
  - Hypersensitivity [Unknown]
  - Syncope [Unknown]
  - Hypothermia [Unknown]
  - Tremor [Unknown]
  - Erythema [Unknown]

NARRATIVE: CASE EVENT DATE: 20200317
